FAERS Safety Report 20233961 (Version 1)
Quarter: 2021Q4

REPORT INFORMATION
  Report Type: Spontaneous
  Country: US (occurrence: US)
  Receive Date: 20211227
  Receipt Date: 20211227
  Transmission Date: 20220304
  Serious: No
  Sender: FDA-Public Use
  Company Number: US-SA-SAC20211224001163

PATIENT
  Sex: Female

DRUGS (11)
  1. DUPIXENT [Suspect]
     Active Substance: DUPILUMAB
     Indication: Illness
     Dosage: 300 MG, QOW
     Route: 058
  2. ALIGN [Concomitant]
     Active Substance: BIFIDOBACTERIUM LONGUM SUBSP. INFANTIS
  3. ASPIRIN [Concomitant]
     Active Substance: ASPIRIN
  4. OXYCODONE HYDROCHLORIDE [Concomitant]
     Active Substance: OXYCODONE HYDROCHLORIDE
  5. RYBELSUS [Concomitant]
     Active Substance: SEMAGLUTIDE
  6. MOVANTIK [Concomitant]
     Active Substance: NALOXEGOL OXALATE
  7. DOXEPIN [Concomitant]
     Active Substance: DOXEPIN
  8. METFORMIN [Concomitant]
     Active Substance: METFORMIN HYDROCHLORIDE
  9. CEFADROXIL [Concomitant]
     Active Substance: CEFADROXIL
  10. OXYCODONE [Concomitant]
     Active Substance: OXYCODONE
  11. BISACODYL [Concomitant]
     Active Substance: BISACODYL

REACTIONS (2)
  - Knee operation [Unknown]
  - Product use in unapproved indication [Unknown]
